FAERS Safety Report 4607398-X (Version None)
Quarter: 2005Q1

REPORT INFORMATION
  Report Type: 
  Country: None (occurrence: None)
  Receive Date: 20050310
  Receipt Date: 20050302
  Transmission Date: 20050727
  Serious: Yes (Hospitalization)
  Sender: FDA-Public Use
  Company Number: 2005CG00458

PATIENT
  Age: 75 Year
  Sex: Male

DRUGS (2)
  1. CRESTOR [Suspect]
     Indication: LIPOPROTEIN (A)
     Dosage: 1 DF TIWK PO
     Route: 048
     Dates: start: 20041009, end: 20041110
  2. TANAKAN [Concomitant]

REACTIONS (2)
  - DERMATITIS EXFOLIATIVE [None]
  - PITYRIASIS RUBRA PILARIS [None]
